FAERS Safety Report 8229075-9 (Version None)
Quarter: 2012Q1

REPORT INFORMATION
  Report Type: 
  Country: None (occurrence: None)
  Receive Date: 20120322
  Receipt Date: 20120207
  Transmission Date: 20120608
  Serious: Yes (Other)
  Sender: FDA-Public Use
  Company Number: AU-ROCHE-1050842

PATIENT

DRUGS (1)
  1. VEMURAFENIB [Suspect]
     Indication: PRODUCT USED FOR UNKNOWN INDICATION

REACTIONS (8)
  - FATIGUE [None]
  - DERMATITIS PSORIASIFORM [None]
  - GAIT DISTURBANCE [None]
  - CEREBELLAR SYNDROME [None]
  - INSOMNIA [None]
  - TREMOR [None]
  - RASH [None]
  - DISEASE PROGRESSION [None]
